FAERS Safety Report 17468213 (Version 5)
Quarter: 2021Q2

REPORT INFORMATION
  Report Type: Spontaneous
  Country: JP (occurrence: JP)
  Receive Date: 20200227
  Receipt Date: 20210511
  Transmission Date: 20210716
  Serious: Yes (Life-Threatening, Hospitalization, Other)
  Sender: FDA-Public Use
  Company Number: JP-PFIZER INC-2020077700

PATIENT
  Age: 44 Year
  Sex: Female

DRUGS (2)
  1. MEDROXYPROGESTERONE ACETATE. [Suspect]
     Active Substance: MEDROXYPROGESTERONE ACETATE
     Indication: MANAGEMENT OF REPRODUCTION
     Dosage: UNK, CYCLIC(9 CYCLES)
  2. MEDROXYPROGESTERONE ACETATE. [Suspect]
     Active Substance: MEDROXYPROGESTERONE ACETATE
     Indication: ENDOMETRIAL CANCER

REACTIONS (3)
  - Ovarian cancer [Recovered/Resolved]
  - Off label use [Unknown]
  - Second primary malignancy [Recovered/Resolved]
